FAERS Safety Report 23707928 (Version 1)
Quarter: 2024Q2

REPORT INFORMATION
  Report Type: Spontaneous
  Country: US (occurrence: US)
  Receive Date: 20240404
  Receipt Date: 20240404
  Transmission Date: 20240716
  Serious: Yes (Hospitalization, Other)
  Sender: FDA-Public Use
  Company Number: US-PRESTIGE-202403-US-000863

PATIENT
  Age: 32 Year
  Sex: Female

DRUGS (2)
  1. GOODYS EXTRA STRENGTH [Suspect]
     Active Substance: ACETAMINOPHEN\ASPIRIN\CAFFEINE
     Indication: Pain
     Dosage: TAKING 2-3 TIMES DAILY FOR 6 YEARS
     Route: 048
  2. GOODYS EXTRA STRENGTH HEADACHE MIXED FRUIT BLAST [Suspect]
     Active Substance: ACETAMINOPHEN\ASPIRIN\CAFFEINE
     Indication: Pain
     Dosage: TAKING 2-3 TIMES DAILY FOR 6 YEARS
     Route: 048

REACTIONS (3)
  - Gastric ulcer perforation [Recovered/Resolved]
  - Product use in unapproved indication [Unknown]
  - Incorrect product administration duration [Unknown]
